FAERS Safety Report 5052658-4 (Version None)
Quarter: 2006Q3

REPORT INFORMATION
  Report Type: 
  Country: None (occurrence: None)
  Receive Date: 20060712
  Receipt Date: 20060712
  Transmission Date: 20061208
  Serious: Yes (Other)
  Sender: FDA-Public Use
  Company Number: None

PATIENT
  Age: 75 Year
  Sex: Male
  Weight: 77.1 kg

DRUGS (14)
  1. CIPROFLOXACIN [Suspect]
  2. OMEPRAZOLE [Concomitant]
  3. METFORMIN HYDROCHLORIDE [Concomitant]
  4. LISINOPRIL [Concomitant]
  5. ATORVASTATIN CALCIUM [Concomitant]
  6. NIACIN [Concomitant]
  7. CITALOPRAM HYDROBROMIDE [Concomitant]
  8. FISH OIL [Concomitant]
  9. DOCUSATE [Concomitant]
  10. MULTI-VITAMIN [Concomitant]
  11. PSYLLIUM SF [Concomitant]
  12. OXYBUTYNIN CHLORIDE [Concomitant]
  13. FLUTICASONE PROP [Concomitant]
  14. HEMORRHOIDAL RTL OINT [Concomitant]

REACTIONS (1)
  - RASH [None]
